FAERS Safety Report 17611906 (Version 1)
Quarter: 2020Q2

REPORT INFORMATION
  Report Type: Spontaneous
  Country: US (occurrence: US)
  Receive Date: 20200401
  Receipt Date: 20200401
  Transmission Date: 20200713
  Serious: Yes (Other)
  Sender: FDA-Public Use
  Company Number: US-ALLERGAN-2013264US

PATIENT
  Sex: Male

DRUGS (1)
  1. POLYMYXIN;TRIMETHOPRIM UNK [Suspect]
     Active Substance: POLYMYXIN B SULFATE\TRIMETHOPRIM SULFATE
     Indication: PRODUCT USED FOR UNKNOWN INDICATION
     Dosage: 1 GTT, QID
     Route: 047
     Dates: start: 20200309, end: 20200323

REACTIONS (2)
  - Cataract [Unknown]
  - Paraesthesia oral [Not Recovered/Not Resolved]
